FAERS Safety Report 6339429-3 (Version None)
Quarter: 2009Q3

REPORT INFORMATION
  Report Type: 
  Country: None (occurrence: None)
  Receive Date: 20090903
  Receipt Date: 20090825
  Transmission Date: 20100115
  Serious: Yes (Hospitalization, Other)
  Sender: FDA-Public Use
  Company Number: US-ELI_LILLY_AND_COMPANY-US200904005820

PATIENT
  Sex: Female

DRUGS (6)
  1. HUMALOG [Suspect]
     Indication: TYPE 1 DIABETES MELLITUS
     Dosage: 16 U, UNK
     Dates: start: 19990101
  2. HUMALOG [Suspect]
     Dosage: UNK, AS NEEDED
  3. LANTUS [Concomitant]
     Indication: TYPE 1 DIABETES MELLITUS
     Dosage: 12 U, UNK
  4. LANTUS [Concomitant]
     Dosage: 13 U, UNK
  5. LANTUS [Concomitant]
     Dosage: 11 U, UNK
  6. LANTUS [Concomitant]
     Dosage: UNK, AS NEEDED

REACTIONS (9)
  - BLOOD GLUCOSE INCREASED [None]
  - BLOOD POTASSIUM DECREASED [None]
  - DIABETIC KETOACIDOSIS [None]
  - DRUG DOSE OMISSION [None]
  - GLYCOSYLATED HAEMOGLOBIN INCREASED [None]
  - GROWTH RETARDATION [None]
  - KETOSIS [None]
  - PYREXIA [None]
  - WRONG TECHNIQUE IN DRUG USAGE PROCESS [None]
